FAERS Safety Report 4572040-3 (Version None)
Quarter: 2005Q1

REPORT INFORMATION
  Report Type: 
  Country: None (occurrence: None)
  Receive Date: 20050202
  Receipt Date: 20050114
  Transmission Date: 20050727
  Serious: No
  Sender: FDA-Public Use
  Company Number: USA041286535

PATIENT
  Sex: Male
  Weight: 28 kg

DRUGS (1)
  1. STRATTERA [Suspect]
     Dosage: 60 MG/1 DAY
     Dates: start: 20030101

REACTIONS (6)
  - DECREASED APPETITE [None]
  - EYE DISORDER [None]
  - PRESCRIBED OVERDOSE [None]
  - PRURITUS [None]
  - SKIN DISCOLOURATION [None]
  - WEIGHT DECREASED [None]
